FAERS Safety Report 17464236 (Version 1)
Quarter: 2020Q1

REPORT INFORMATION
  Report Type: Report from Study
  Country: IT (occurrence: IT)
  Receive Date: 20200226
  Receipt Date: 20200226
  Transmission Date: 20200409
  Serious: Yes (Hospitalization)
  Sender: FDA-Public Use
  Company Number: IT-PFIZER INC-2020081287

PATIENT
  Age: 65 Year
  Sex: Female

DRUGS (2)
  1. MIDAZOLAM ACCORD [Suspect]
     Active Substance: MIDAZOLAM HYDROCHLORIDE
     Indication: PREMEDICATION
     Dosage: 1 DF, UNK
     Route: 042
     Dates: start: 20190828, end: 20190828
  2. FENTANEST [Suspect]
     Active Substance: FENTANYL CITRATE
     Indication: PREMEDICATION
     Dosage: 1 DF, UNK
     Route: 042
     Dates: start: 20190828, end: 20190828

REACTIONS (3)
  - Drug hypersensitivity [Recovered/Resolved]
  - Malaise [Recovered/Resolved]
  - Vomiting [Recovered/Resolved]

NARRATIVE: CASE EVENT DATE: 20190828
